FAERS Safety Report 7611423-1 (Version None)
Quarter: 2011Q3

REPORT INFORMATION
  Report Type: 
  Country: None (occurrence: None)
  Receive Date: 20110715
  Receipt Date: 20110707
  Transmission Date: 20111222
  Serious: Yes (Hospitalization)
  Sender: FDA-Public Use
  Company Number: US-ROCHE-788533

PATIENT
  Age: 65 Year
  Sex: Male

DRUGS (3)
  1. BEVACIZUMAB [Suspect]
     Dosage: ROUTE AND DOSE AS PER PROTOCOL, DOSE: 15 MG/KG ON DAYS 1 AND 22
     Route: 042
     Dates: start: 20110617
  2. CETUXIMAB [Suspect]
     Dosage: ROUTE AND DOSE AS PER PROTOCOL, 250 MG/M2 INTRAVENOUS WEEKLY X 7 INFUSIONS
     Route: 042
     Dates: start: 20110617
  3. CISPLATIN [Suspect]
     Dosage: ROUTE AS PER PROTOCOL, 50 MG/M2 ON DAYS 1,2 AND 22, 23.
     Route: 042

REACTIONS (2)
  - BLOOD CREATININE [None]
  - RENAL FAILURE ACUTE [None]
